FAERS Safety Report 8507512-X (Version None)
Quarter: 2012Q3

REPORT INFORMATION
  Report Type: 
  Country: None (occurrence: None)
  Receive Date: 20120713
  Receipt Date: 20120703
  Transmission Date: 20120928
  Serious: Yes (Hospitalization, Other)
  Sender: FDA-Public Use
  Company Number: US-PAR PHARMACEUTICAL, INC-2012SCPR004487

PATIENT

DRUGS (9)
  1. OLANZAPINE [Suspect]
     Indication: PSYCHOTIC DISORDER
  2. BENZTROPINE MESYLATE [Suspect]
     Indication: BIPOLAR DISORDER
     Dosage: UNK, UNKNOWN
     Route: 065
  3. BENZTROPINE MESYLATE [Suspect]
     Indication: PSYCHOTIC DISORDER
  4. BENZTROPINE MESYLATE [Suspect]
     Indication: DEPRESSION
  5. BUPROPION HCL [Concomitant]
     Indication: DEPRESSION
  6. OLANZAPINE [Suspect]
     Indication: DEPRESSION
     Dosage: UNK, UNKNOWN
     Route: 065
  7. BUPROPION HCL [Concomitant]
     Indication: BIPOLAR DISORDER
     Dosage: UNK, UNKNOWN
     Route: 065
  8. OLANZAPINE [Suspect]
     Indication: BIPOLAR DISORDER
     Dosage: UNK, UNKNOWN
     Route: 065
  9. BUPROPION HCL [Concomitant]
     Indication: PSYCHOTIC DISORDER

REACTIONS (1)
  - COLITIS ISCHAEMIC [None]
